FAERS Safety Report 12803336 (Version 1)
Quarter: 2016Q4

REPORT INFORMATION
  Report Type: Spontaneous
  Country: IT (occurrence: IT)
  Receive Date: 20161003
  Receipt Date: 20161003
  Transmission Date: 20170207
  Serious: Yes (Hospitalization)
  Sender: FDA-Public Use
  Company Number: IT-SA-2016SA177809

PATIENT
  Age: 69 Year
  Sex: Male

DRUGS (6)
  1. LORTAAN [Concomitant]
     Active Substance: LOSARTAN POTASSIUM
  2. HUMALOG [Suspect]
     Active Substance: INSULIN LISPRO
     Indication: TYPE 2 DIABETES MELLITUS
     Dosage: 15 IU +  10IU +25 IU
     Route: 058
  3. LANSOPRAZOLE. [Concomitant]
     Active Substance: LANSOPRAZOLE
  4. ASCRIPTIN [Concomitant]
     Active Substance: ASPIRIN
  5. TORVAST [Concomitant]
     Active Substance: ATORVASTATIN
     Route: 065
  6. LANTUS [Suspect]
     Active Substance: INSULIN GLARGINE
     Indication: TYPE 2 DIABETES MELLITUS
     Dosage: 35 IU IN THE AFTERNOON
     Route: 058

REACTIONS (2)
  - Confusional state [Recovering/Resolving]
  - Asthenia [Recovering/Resolving]

NARRATIVE: CASE EVENT DATE: 20160628
